FAERS Safety Report 14941915 (Version 1)
Quarter: 2018Q2

REPORT INFORMATION
  Report Type: Spontaneous
  Country: US (occurrence: US)
  Receive Date: 20180527
  Receipt Date: 20180527
  Transmission Date: 20180711
  Serious: Yes (Hospitalization, Other)
  Sender: FDA-Public Use
  Company Number: US-NOVOPROD-601511

PATIENT
  Age: 60 Year
  Sex: Female
  Weight: 123.36 kg

DRUGS (5)
  1. LEVEMIR [Suspect]
     Active Substance: INSULIN DETEMIR
     Dosage: 80 U, BID
     Route: 058
  2. NOVOLOG [Concomitant]
     Active Substance: INSULIN ASPART
     Indication: TYPE 2 DIABETES MELLITUS
     Dosage: UNK
     Route: 058
  3. LEVEMIR [Suspect]
     Active Substance: INSULIN DETEMIR
     Dosage: 70 U, BID
     Route: 058
  4. LEVEMIR [Suspect]
     Active Substance: INSULIN DETEMIR
     Indication: TYPE 2 DIABETES MELLITUS
     Dosage: 60 U, BID
     Route: 058
  5. LEVEMIR [Suspect]
     Active Substance: INSULIN DETEMIR
     Dosage: 90 U, BID
     Route: 058
     Dates: end: 201805

REACTIONS (5)
  - Dizziness [Unknown]
  - Rectal cancer [Recovered/Resolved]
  - Asthenia [Unknown]
  - Nausea [Not Recovered/Not Resolved]
  - Breast cancer [Recovering/Resolving]

NARRATIVE: CASE EVENT DATE: 2014
